FAERS Safety Report 12966072 (Version 1)
Quarter: 2016Q4

REPORT INFORMATION
  Report Type: Spontaneous
  Country: US (occurrence: US)
  Receive Date: 20161119
  Receipt Date: 20161119
  Transmission Date: 20170207
  Serious: No
  Sender: FDA-Public Use
  Company Number: None

PATIENT
  Sex: Male

DRUGS (1)
  1. HUMIRA [Suspect]
     Active Substance: ADALIMUMAB
     Indication: PSORIATIC ARTHROPATHY
     Dosage: HUMKIRA - 40MG - SUBCUTANEOUS - FREQUENCY - Q14DAYS
     Route: 058
     Dates: start: 20160629

REACTIONS (1)
  - Therapy non-responder [None]
